FAERS Safety Report 15778978 (Version 1)
Quarter: 2019Q1

REPORT INFORMATION
  Report Type: Spontaneous
  Country: US (occurrence: US)
  Receive Date: 20190101
  Receipt Date: 20190101
  Transmission Date: 20190417
  Serious: No
  Sender: FDA-Public Use
  Company Number: US-ACCORD-069042

PATIENT
  Age: 48 Year
  Sex: Male

DRUGS (1)
  1. SERTRALINE ACCORD [Suspect]
     Active Substance: SERTRALINE HYDROCHLORIDE
     Indication: MOOD ALTERED
     Dosage: STRENGTH: 100 MG
     Route: 048
     Dates: start: 20180507, end: 2018

REACTIONS (4)
  - Malaise [Unknown]
  - Headache [Unknown]
  - Cognitive disorder [Unknown]
  - Visual impairment [Unknown]
